FAERS Safety Report 25760045 (Version 1)
Quarter: 2025Q3

REPORT INFORMATION
  Report Type: Spontaneous
  Country: US (occurrence: US)
  Receive Date: 20250904
  Receipt Date: 20250904
  Transmission Date: 20251020
  Serious: Yes (Other)
  Sender: MYLAN
  Company Number: US-MYLANLABS-2025M1074542

PATIENT
  Sex: Female

DRUGS (11)
  1. COLCHICINE [Suspect]
     Active Substance: COLCHICINE
     Indication: Erythromelalgia
     Dosage: 0.6 MILLIGRAM, BID
  2. CROMOLYN SODIUM [Suspect]
     Active Substance: CROMOLYN SODIUM
     Indication: Erythromelalgia
     Dosage: 10 MILLILITER, 0.25 DAY
  3. GABAPENTIN [Suspect]
     Active Substance: GABAPENTIN
     Indication: Erythromelalgia
     Dosage: 300 MILLIGRAM, TID
  4. GABAPENTIN [Suspect]
     Active Substance: GABAPENTIN
     Dosage: DOSE WAS INCREASED TO 1200MG THREE TIMES DAILY
  5. GABAPENTIN [Suspect]
     Active Substance: GABAPENTIN
     Indication: Erythromelalgia
  6. HYDROXYZINE [Suspect]
     Active Substance: HYDROXYZINE HYDROCHLORIDE
     Indication: Erythromelalgia
     Dosage: 250?300MG DAILY
  7. PENTOXIFYLLINE [Suspect]
     Active Substance: PENTOXIFYLLINE
     Indication: Erythromelalgia
     Dosage: THREE TIMES DAILY
  8. AMITRIPTYLINE\KETAMINE [Suspect]
     Active Substance: AMITRIPTYLINE\KETAMINE
     Indication: Erythromelalgia
  9. CETIRIZINE [Concomitant]
     Active Substance: CETIRIZINE HYDROCHLORIDE
     Indication: Erythromelalgia
     Dosage: 20 MILLIGRAM, BID
  10. OXYMETAZOLINE [Concomitant]
     Active Substance: OXYMETAZOLINE
     Indication: Erythromelalgia
  11. DIPHENHYDRAMINE [Concomitant]
     Active Substance: DIPHENHYDRAMINE
     Indication: Erythromelalgia
     Dosage: 100 MILLIGRAM, QD, NIGHTLY

REACTIONS (2)
  - Treatment failure [Unknown]
  - Off label use [Unknown]
